FAERS Safety Report 10026752 (Version 1)
Quarter: 2014Q1

REPORT INFORMATION
  Report Type: Spontaneous
  Country: IN (occurrence: None)
  Receive Date: 20140318
  Receipt Date: 20140318
  Transmission Date: 20141002
  Serious: Yes (Other)
  Sender: FDA-Public Use
  Company Number: FK201400820

PATIENT
  Age: 40 Year
  Sex: Male

DRUGS (1)
  1. GEMCITABINE (GEMCITABINE) (GEMCITABINE) [Suspect]
     Indication: BLADDER CANCER

REACTIONS (2)
  - Acute generalised exanthematous pustulosis [None]
  - Pyrexia [None]
